FAERS Safety Report 26210073 (Version 1)
Quarter: 2025Q4

REPORT INFORMATION
  Report Type: Spontaneous
  Country: CN (occurrence: CN)
  Receive Date: 20251229
  Receipt Date: 20251229
  Transmission Date: 20260118
  Serious: Yes (Hospitalization)
  Sender: NOVARTIS
  Company Number: CN-002147023-NVSC2025CN196418

PATIENT
  Age: 79 Year
  Sex: Male

DRUGS (1)
  1. TASIGNA [Suspect]
     Active Substance: NILOTINIB
     Indication: Chronic myeloid leukaemia
     Dosage: 600 MG
     Route: 048
     Dates: start: 20150714

REACTIONS (3)
  - Gallbladder rupture [Unknown]
  - Pneumonitis [Unknown]
  - Pyrexia [Unknown]
